FAERS Safety Report 7724580-3 (Version None)
Quarter: 2011Q3

REPORT INFORMATION
  Report Type: 
  Country: None (occurrence: None)
  Receive Date: 20110901
  Receipt Date: 20110829
  Transmission Date: 20111222
  Serious: Yes (Other)
  Sender: FDA-Public Use
  Company Number: GB-GILEAD-E2B_00001469

PATIENT
  Age: 58 Year
  Sex: Female
  Weight: 88 kg

DRUGS (5)
  1. LEXAPRO [Concomitant]
  2. RITONAVIR [Suspect]
     Indication: HIV INFECTION
     Dosage: DAILY.
     Route: 048
     Dates: start: 20091201
  3. FOSINOPRIL SODIUM [Concomitant]
  4. REYATAZ [Suspect]
     Indication: HIV INFECTION
     Route: 048
     Dates: start: 20091201, end: 20110401
  5. TRUVADA [Suspect]
     Indication: HIV INFECTION
     Dosage: 1DF: 1TAB.
     Route: 048
     Dates: start: 20091201

REACTIONS (1)
  - NEPHROLITHIASIS [None]
